FAERS Safety Report 8111581-9 (Version None)
Quarter: 2012Q1

REPORT INFORMATION
  Report Type: 
  Country: None (occurrence: None)
  Receive Date: 20120203
  Receipt Date: 20120124
  Transmission Date: 20120608
  Serious: Yes (Death, Other)
  Sender: FDA-Public Use
  Company Number: US-PFIZER INC-2012019633

PATIENT
  Age: 5 Year
  Sex: Female

DRUGS (1)
  1. METHYLPREDNISOLONE [Suspect]
     Dosage: 15 MG/KG, UNK

REACTIONS (2)
  - BLOOD PRESSURE INCREASED [None]
  - HAEMORRHAGE INTRACRANIAL [None]
